FAERS Safety Report 19328648 (Version 6)
Quarter: 2022Q1

REPORT INFORMATION
  Report Type: Report from Study
  Country: US (occurrence: US)
  Receive Date: 20210528
  Receipt Date: 20220216
  Transmission Date: 20220423
  Serious: No
  Sender: FDA-Public Use
  Company Number: NVSC2021US114836

PATIENT
  Age: 56 Year
  Sex: Female

DRUGS (1)
  1. KESIMPTA [Suspect]
     Active Substance: OFATUMUMAB
     Indication: Multiple sclerosis
     Dosage: 20 MG
     Route: 058
     Dates: start: 20210519

REACTIONS (10)
  - Influenza like illness [Recovered/Resolved]
  - Limb discomfort [Recovered/Resolved]
  - Lethargy [Recovered/Resolved]
  - Catatonia [Recovered/Resolved]
  - Myalgia [Unknown]
  - Headache [Recovered/Resolved]
  - Injection site extravasation [Unknown]
  - Headache [Recovering/Resolving]
  - Therapeutic product effect incomplete [Unknown]
  - Personality change [Unknown]

NARRATIVE: CASE EVENT DATE: 20210519
